FAERS Safety Report 13803554 (Version 1)
Quarter: 2017Q3

REPORT INFORMATION
  Report Type: Spontaneous
  Country: US (occurrence: US)
  Receive Date: 20170728
  Receipt Date: 20170728
  Transmission Date: 20171127
  Serious: No
  Sender: FDA-Public Use
  Company Number: US-ACCORD-042635

PATIENT
  Age: 57 Year
  Sex: Female
  Weight: 83 kg

DRUGS (3)
  1. SYNTHROID [Concomitant]
     Active Substance: LEVOTHYROXINE SODIUM
     Indication: HYPOTHYROIDISM
  2. LETROZOLE. [Suspect]
     Active Substance: LETROZOLE
     Indication: CHEMOTHERAPY
     Route: 048
     Dates: start: 201409
  3. AROMASIN [Suspect]
     Active Substance: EXEMESTANE
     Indication: CHEMOTHERAPY
     Route: 048
     Dates: start: 20160105, end: 201603

REACTIONS (3)
  - Fatigue [Not Recovered/Not Resolved]
  - Arthralgia [Not Recovered/Not Resolved]
  - Hepatic enzyme increased [Not Recovered/Not Resolved]

NARRATIVE: CASE EVENT DATE: 201510
